FAERS Safety Report 6057880 (Version 26)
Quarter: 2013Q2

REPORT INFORMATION
  Report Type: Spontaneous
  Country: US (occurrence: US)
  Receive Date: 20060605
  Receipt Date: 20130506
  Transmission Date: 20140414
  Serious: Yes (Death, Other)
  Sender: FDA-Public Use
  Company Number: PHEH2006US06651

PATIENT
  Age: 57 Year
  Sex: Male
  Weight: 65.76 kg

DRUGS (21)
  1. AREDIA [Suspect]
     Indication: OSTEOPOROSIS PROPHYLAXIS
  2. ZOMETA [Suspect]
     Indication: OSTEOPOROSIS PROPHYLAXIS
  3. FOSAMAX [Suspect]
     Dates: start: 1999
  4. MEDROL [Concomitant]
  5. CALCIUM W/VITAMIN D NOS [Concomitant]
  6. BACTRIM [Concomitant]
     Indication: SKIN ULCER
     Dosage: UNK TWICE WEEKLY
     Route: 048
  7. PLAQUENIL [Concomitant]
     Dosage: 800 MG, QD
     Route: 048
  8. PROGRAFT [Concomitant]
     Dosage: 2 MG, QD
     Route: 048
  9. CELLCEPT [Concomitant]
     Dosage: 2 G, QD
     Route: 048
  10. FAMVIR [Concomitant]
     Indication: MOUTH ULCERATION
     Dosage: UKN, PRN
  11. CITRACAL [Concomitant]
  12. GLUCOSAMINE [Concomitant]
  13. TRICOR [Concomitant]
  14. KEPPRA [Concomitant]
  15. NEXIUM [Concomitant]
  16. OS-CAL [Concomitant]
  17. ZYVOX [Concomitant]
  18. VANCOMYCIN [Concomitant]
  19. INFLUENZA VACCINE [Concomitant]
  20. LORTAB [Concomitant]
  21. ACYCLOVIR [Concomitant]

REACTIONS (154)
  - Toxic shock syndrome [Fatal]
  - Osteonecrosis of jaw [Unknown]
  - Osteoradionecrosis [Unknown]
  - Exposed bone in jaw [Unknown]
  - Skin exfoliation [Unknown]
  - Pain [Unknown]
  - Anxiety [Unknown]
  - Dry mouth [Unknown]
  - Vasoconstriction [Unknown]
  - Gingival recession [Unknown]
  - Periodontitis [Unknown]
  - Erythema [Unknown]
  - Mouth ulceration [Recovering/Resolving]
  - Gingival inflammation [Unknown]
  - Poor personal hygiene [Unknown]
  - Gingival bleeding [Unknown]
  - Osteonecrosis [Unknown]
  - Arthralgia [Unknown]
  - Wound [Unknown]
  - General physical health deterioration [Unknown]
  - Subdural haematoma [Unknown]
  - Osteomyelitis [Unknown]
  - Dental caries [Unknown]
  - Excessive granulation tissue [Unknown]
  - Activities of daily living impaired [Unknown]
  - Joint range of motion decreased [Unknown]
  - Skin ulcer [Recovering/Resolving]
  - Diverticulum intestinal [Unknown]
  - Tooth fracture [Unknown]
  - Graft versus host disease [Unknown]
  - Spinal deformity [Unknown]
  - Ulcerative keratitis [Unknown]
  - Nystagmus [Unknown]
  - Convulsion [Unknown]
  - Pneumonia [Unknown]
  - Large intestine polyp [Unknown]
  - Colon adenoma [Unknown]
  - Tracheal deviation [Unknown]
  - Sjogren^s syndrome [Unknown]
  - Contusion [Unknown]
  - Osteoarthritis [Unknown]
  - Dry eye [Unknown]
  - Vertigo [Unknown]
  - Fall [Unknown]
  - Scar [Unknown]
  - Cellulitis [Unknown]
  - Injury [Unknown]
  - Impaired healing [Unknown]
  - Bone lesion [Unknown]
  - Obstructive airways disorder [Unknown]
  - Epistaxis [Recovered/Resolved]
  - Paraesthesia [Unknown]
  - Dysphagia [Unknown]
  - Oedema peripheral [Recovering/Resolving]
  - Excoriation [Unknown]
  - Sensory loss [Unknown]
  - Kyphoscoliosis [Unknown]
  - Hypoaesthesia [Unknown]
  - Foot deformity [Unknown]
  - Catheter site infection [Unknown]
  - Neutropenia [Unknown]
  - Tinnitus [Unknown]
  - Grand mal convulsion [Recovered/Resolved]
  - Dysarthria [Recovering/Resolving]
  - Macular oedema [Unknown]
  - Blepharitis [Unknown]
  - Corneal scar [Unknown]
  - Pleural effusion [Unknown]
  - Dyspnoea [Unknown]
  - Hypotension [Unknown]
  - Lactic acidosis [Unknown]
  - Respiratory distress [Unknown]
  - Sinus tachycardia [Unknown]
  - Septic shock [Unknown]
  - Leukocytosis [Unknown]
  - Bandaemia [Unknown]
  - Abdominal distension [Unknown]
  - Lung infiltration [Unknown]
  - Metabolic acidosis [Unknown]
  - Deformity [Unknown]
  - Colitis [Unknown]
  - Cardiac arrest [Unknown]
  - Fatigue [Unknown]
  - Back pain [Unknown]
  - Diarrhoea [Unknown]
  - Chills [Unknown]
  - Nausea [Unknown]
  - Dehydration [Unknown]
  - Oropharyngeal pain [Unknown]
  - Dyspnoea exertional [Unknown]
  - Musculoskeletal discomfort [Unknown]
  - Chest discomfort [Unknown]
  - Blood lactic acid increased [Unknown]
  - Malignant melanoma [Unknown]
  - Calcinosis [Unknown]
  - Seborrhoeic keratosis [Unknown]
  - Skin cancer [Unknown]
  - Nodule [Unknown]
  - Conjunctival haemorrhage [Unknown]
  - Bronchitis [Unknown]
  - Osteopenia [Unknown]
  - Lichenification [Unknown]
  - Oral disorder [Unknown]
  - Rales [Unknown]
  - Osteosclerosis [Unknown]
  - Rectal polyp [Unknown]
  - Meibomian gland dysfunction [Unknown]
  - Fibrosis [Unknown]
  - Ocular hyperaemia [Unknown]
  - Hypercalcaemia [Unknown]
  - Dermatitis [Unknown]
  - Abscess [Unknown]
  - Benign prostatic hyperplasia [Unknown]
  - Anaemia [Unknown]
  - Haemorrhage [Unknown]
  - Pharyngeal erythema [Unknown]
  - Lymphadenopathy [Unknown]
  - Spinal osteoarthritis [Unknown]
  - Arteriosclerosis coronary artery [Unknown]
  - Iritis [Unknown]
  - Trichiasis [Unknown]
  - Renal failure acute [Unknown]
  - Conjunctivitis [Unknown]
  - Oral herpes [Unknown]
  - Joint stiffness [Unknown]
  - Neuropathy peripheral [Unknown]
  - Loose tooth [Unknown]
  - Actinic keratosis [Unknown]
  - Actinic elastosis [Unknown]
  - Telangiectasia [Unknown]
  - Posterior capsule opacification [Unknown]
  - Vitreous disorder [Unknown]
  - Elschnig^s bodies [Unknown]
  - Laryngitis [Unknown]
  - Corneal thinning [Unknown]
  - Uvulitis [Unknown]
  - Optic ischaemic neuropathy [Unknown]
  - Melanocytic naevus [Unknown]
  - Scoliosis [Unknown]
  - Varicose vein [Unknown]
  - Cardiac disorder [Unknown]
  - Splenic infarction [Unknown]
  - Splenic calcification [Unknown]
  - Adrenal mass [Unknown]
  - Bronchiectasis [Unknown]
  - Mass [Unknown]
  - Cerebral calcification [Unknown]
  - Vascular calcification [Unknown]
  - Carotid arteriosclerosis [Unknown]
  - Wheezing [Unknown]
  - Pleural fibrosis [Unknown]
  - Head injury [Unknown]
  - Soft tissue disorder [Unknown]
  - Brain herniation [Unknown]
